FAERS Safety Report 7680727 (Version 2)
Quarter: 2013Q1

REPORT INFORMATION
  Report Type: Spontaneous
  Country: GB (occurrence: None)
  Receive Date: 20101029
  Receipt Date: 20130314
  Transmission Date: 20140127
  Serious: Yes (Other)
  Sender: FDA-Public Use
  Company Number: 734914

PATIENT
  Sex: Female
  Weight: 2.48 kg

DRUGS (15)
  1. CIPROFLOXACIN [Suspect]
     Indication: SEPSIS
     Dosage: 25 MG MILLIGRAM(S), 1 DAY, INTRAVENOUS (NOT OTHERWISE SPECIFIED)
     Route: 042
     Dates: start: 20101012, end: 20101014
  2. (FLUCONAZOLE) [Concomitant]
  3. GENTAMICIN [Concomitant]
  4. FUROSEMIDE [Concomitant]
  5. GENTAMICIN SULFATE [Concomitant]
  6. HYDROCORTISONE [Concomitant]
  7. MEROPENEM [Concomitant]
  8. MIDAZOLAM [Concomitant]
  9. MORPHINE SULFATE [Concomitant]
  10. PHYTONADIONE [Concomitant]
  11. . [Concomitant]
  12. SPIRONOLACTONE [Concomitant]
  13. VANCOMYCIN [Concomitant]
  14. (DOPAMINE HYDROCHLORIDE) [Concomitant]
  15. (RANITIDINE) [Concomitant]

REACTIONS (1)
  - Bradycardia [None]
